FAERS Safety Report 4570736-0 (Version None)
Quarter: 2005Q1

REPORT INFORMATION
  Report Type: 
  Country: None (occurrence: None)
  Receive Date: 20050202
  Receipt Date: 20050120
  Transmission Date: 20050727
  Serious: Yes (Death, Hospitalization)
  Sender: FDA-Public Use
  Company Number: HQWYE333610NOV04

PATIENT
  Age: 72 Year

DRUGS (4)
  1. AMIODARONE (AMIODARONE, INJECTION) [Suspect]
     Indication: ATRIAL FLUTTER
     Dosage: 1200 MG 1X PER 1 DAY, INTRAVENOUS;600 MG 1X PER 1 DAY, INTRAVENOUS
     Route: 042
     Dates: start: 20040905, end: 20040906
  2. AMIODARONE (AMIODARONE, INJECTION) [Suspect]
     Indication: ATRIAL FLUTTER
     Dosage: 1200 MG 1X PER 1 DAY, INTRAVENOUS;600 MG 1X PER 1 DAY, INTRAVENOUS
     Route: 042
     Dates: start: 20040907, end: 20040912
  3. DIGOXIN (DIGOXIN) [Concomitant]
  4. BISOPROLOL FUMARATE [Concomitant]

REACTIONS (4)
  - ALVEOLITIS FIBROSING [None]
  - CEREBRAL HAEMORRHAGE [None]
  - PNEUMONITIS [None]
  - RENAL FAILURE ACUTE [None]
